FAERS Safety Report 25500255 (Version 1)
Quarter: 2025Q3

REPORT INFORMATION
  Report Type: Spontaneous
  Country: US (occurrence: None)
  Receive Date: 20250701
  Receipt Date: 20250701
  Transmission Date: 20251021
  Serious: Yes (Disabling)
  Sender: FDA-CTU
  Company Number: None

PATIENT
  Age: 61 Year
  Sex: Male
  Weight: 75.15 kg

DRUGS (1)
  1. ATORVASTATIN [Suspect]
     Active Substance: ATORVASTATIN
     Indication: Low density lipoprotein increased
     Dates: start: 20250523, end: 20250623

REACTIONS (3)
  - Arthralgia [None]
  - Activities of daily living decreased [None]
  - Therapy cessation [None]

NARRATIVE: CASE EVENT DATE: 20250523
